FAERS Safety Report 16128763 (Version 1)
Quarter: 2019Q1

REPORT INFORMATION
  Report Type: Spontaneous
  Country: US (occurrence: US)
  Receive Date: 20190328
  Receipt Date: 20190328
  Transmission Date: 20190418
  Serious: Yes (Hospitalization)
  Sender: FDA-Public Use
  Company Number: US-TEVA-2019-US-1030010

PATIENT
  Age: 79 Year
  Sex: Female

DRUGS (3)
  1. NITROFURANTOIN. [Suspect]
     Active Substance: NITROFURANTOIN
     Indication: PROPHYLAXIS
     Route: 065
  2. LEVETIRACETAM. [Concomitant]
     Active Substance: LEVETIRACETAM
     Indication: EPILEPSY
     Route: 065
  3. VALSARTAN. [Concomitant]
     Active Substance: VALSARTAN
     Indication: HYPERTENSION
     Route: 065

REACTIONS (6)
  - Splenomegaly [Unknown]
  - Hepatic cirrhosis [Recovering/Resolving]
  - Hepatotoxicity [Recovering/Resolving]
  - Hyponatraemia [Recovering/Resolving]
  - Hepatic fibrosis [Unknown]
  - Biliary dilatation [Unknown]
